FAERS Safety Report 8781244 (Version 2)
Quarter: 2012Q4

REPORT INFORMATION
  Report Type: 
  Country: US (occurrence: US)
  Receive Date: 20120913
  Receipt Date: 20120926
  Transmission Date: 20130627
  Serious: Yes (Other)
  Sender: FDA-Public Use
  Company Number: US-009507513-1209USA003107

PATIENT
  Age: 80 Year
  Sex: Female

DRUGS (2)
  1. ZOCOR [Suspect]
     Indication: BLOOD CHOLESTEROL INCREASED
     Dosage: 20 mg, qd
     Route: 048
     Dates: end: 201209
  2. ZOCOR [Suspect]
     Indication: HYPERTENSION

REACTIONS (2)
  - Cerebrovascular accident [Unknown]
  - Amnesia [Not Recovered/Not Resolved]
